FAERS Safety Report 6259805-7 (Version None)
Quarter: 2009Q3

REPORT INFORMATION
  Report Type: 
  Country: None (occurrence: None)
  Receive Date: 20090708
  Receipt Date: 20090629
  Transmission Date: 20100115
  Serious: Yes (Other)
  Sender: FDA-Public Use
  Company Number: BE-ALLERGAN-0909150US

PATIENT
  Age: 2 Week
  Sex: Male
  Weight: 2.4 kg

DRUGS (5)
  1. ALPHAGAN [Suspect]
     Indication: ACCIDENTAL EXPOSURE
     Dosage: 1 GTT, SINGLE
     Route: 048
  2. DURICEF [Concomitant]
     Dosage: 35 MG, QD
  3. SODIUM BICARBONATE [Concomitant]
     Dosage: 5 MEQ, QD
  4. 1-ALPHALEO [Concomitant]
     Dosage: 1 GTT, QOD
     Route: 048
  5. DITROPAN [Concomitant]

REACTIONS (3)
  - CARDIO-RESPIRATORY DISTRESS [None]
  - HYPERGLYCAEMIA [None]
  - WRONG DRUG ADMINISTERED [None]
